FAERS Safety Report 6051345-3 (Version None)
Quarter: 2009Q1

REPORT INFORMATION
  Report Type: 
  Country: None (occurrence: None)
  Receive Date: 20090121
  Receipt Date: 20090121
  Transmission Date: 20090719
  Serious: Yes (Hospitalization)
  Sender: FDA-Public Use
  Company Number: None

PATIENT
  Age: 55 Year
  Sex: Female
  Weight: 0.07 kg

DRUGS (2)
  1. LOVENOX [Suspect]
     Indication: POST PROCEDURAL COMPLICATION
     Dosage: 30 Q12 HOURS SQ
     Route: 058
     Dates: start: 20080113, end: 20080114
  2. LOVENOX [Suspect]
     Indication: PROPHYLAXIS
     Dosage: 30 Q12 HOURS SQ
     Route: 058
     Dates: start: 20080113, end: 20080114

REACTIONS (2)
  - POST PROCEDURAL HAEMATOMA [None]
  - POST PROCEDURAL HAEMORRHAGE [None]
